FAERS Safety Report 7915123-X (Version None)
Quarter: 2011Q4

REPORT INFORMATION
  Report Type: 
  Country: None (occurrence: None)
  Receive Date: 20111115
  Receipt Date: 20111107
  Transmission Date: 20120403
  Serious: Yes (Hospitalization)
  Sender: FDA-Public Use
  Company Number: US-SANOFI-AVENTIS-2011SA073725

PATIENT
  Sex: Male

DRUGS (4)
  1. SOLOSTAR [Suspect]
  2. APIDRA [Suspect]
     Indication: DIABETES MELLITUS
     Route: 058
  3. LANTUS [Suspect]
     Indication: DIABETES MELLITUS
     Route: 058
  4. SOLOSTAR [Suspect]
     Indication: DIABETES MELLITUS

REACTIONS (1)
  - SURGERY [None]
